FAERS Safety Report 7630507-5 (Version None)
Quarter: 2011Q3

REPORT INFORMATION
  Report Type: 
  Country: None (occurrence: None)
  Receive Date: 20110722
  Receipt Date: 20110708
  Transmission Date: 20111222
  Serious: Yes (Other)
  Sender: FDA-Public Use
  Company Number: IN-WATSON-2011-10787

PATIENT
  Age: 47 Year
  Sex: Female

DRUGS (2)
  1. LOSARTAN POTASSIUM [Concomitant]
     Indication: HYPERTENSION
     Dosage: 50 MG, DAILY
     Route: 065
  2. AMLODIPINE [Suspect]
     Indication: HYPERTENSION
     Dosage: 5 MG, DAILY
     Route: 065

REACTIONS (3)
  - GINGIVAL HYPERPLASIA [None]
  - ORAL DISCHARGE [None]
  - GINGIVAL BLEEDING [None]
